FAERS Safety Report 12128612 (Version 2)
Quarter: 2017Q1

REPORT INFORMATION
  Report Type: Spontaneous
  Country: US (occurrence: US)
  Receive Date: 20160229
  Receipt Date: 20170210
  Transmission Date: 20170428
  Serious: No
  Sender: FDA-Public Use
  Company Number: US-ACORDA-ACO_118921_2015

PATIENT
  Age: 59 Year
  Sex: Female

DRUGS (2)
  1. AMPYRA [Suspect]
     Active Substance: DALFAMPRIDINE
     Indication: GAIT DISTURBANCE
     Dosage: 20 MG, BID
     Route: 065
     Dates: start: 200909
  2. AMPYRA [Suspect]
     Active Substance: DALFAMPRIDINE
     Dosage: UNK
     Route: 065
     Dates: start: 20150506

REACTIONS (9)
  - Multiple sclerosis relapse [Recovered/Resolved]
  - Neuralgia [Not Recovered/Not Resolved]
  - Emotional disorder [Recovered/Resolved]
  - Incorrect dose administered [Unknown]
  - Limb operation [Not Recovered/Not Resolved]
  - Tremor [Recovered/Resolved]
  - Peripheral nerve injury [Not Recovered/Not Resolved]
  - Speech disorder [Recovered/Resolved]
  - Ataxia [Recovered/Resolved]

NARRATIVE: CASE EVENT DATE: 201506
